FAERS Safety Report 17050079 (Version 4)
Quarter: 2020Q1

REPORT INFORMATION
  Report Type: Spontaneous
  Country: JP (occurrence: JP)
  Receive Date: 20191119
  Receipt Date: 20200327
  Transmission Date: 20200409
  Serious: Yes (Hospitalization, Other)
  Sender: FDA-Public Use
  Company Number: JP-PFIZER INC-2019487695

PATIENT
  Age: 44 Year
  Sex: Male

DRUGS (4)
  1. AMITIZA [Suspect]
     Active Substance: LUBIPROSTONE
     Dosage: UNK
     Route: 048
  2. SENNOSIDE [SENNOSIDE A+B CALCIUM] [Suspect]
     Active Substance: SENNOSIDES A AND B
     Indication: CONSTIPATION
     Dosage: UNK
     Route: 048
  3. LOSARTAN POTASSIUM. [Suspect]
     Active Substance: LOSARTAN POTASSIUM
     Indication: HYPERTENSION
     Dosage: UNK
     Dates: start: 20190624
  4. NORVASC [Suspect]
     Active Substance: AMLODIPINE BESYLATE
     Indication: HYPERTENSION
     Dosage: UNK
     Dates: start: 20190617, end: 20190910

REACTIONS (24)
  - Hepatitis fulminant [Unknown]
  - Face oedema [Unknown]
  - Tremor [Unknown]
  - Gingival bleeding [Unknown]
  - Fatigue [Unknown]
  - Blood pressure inadequately controlled [Unknown]
  - Altered state of consciousness [Unknown]
  - Oedema [Unknown]
  - Blood pressure decreased [Unknown]
  - Urinary retention [Unknown]
  - Malaise [Unknown]
  - Pyrexia [Unknown]
  - Vomiting [Unknown]
  - Rhabdomyolysis [Unknown]
  - Angioedema [Unknown]
  - Hot flush [Unknown]
  - Dizziness [Unknown]
  - Initial insomnia [Unknown]
  - Hyperhidrosis [Unknown]
  - Blood creatine phosphokinase increased [Unknown]
  - Nausea [Unknown]
  - Abdominal distension [Unknown]
  - Blood sodium decreased [Unknown]
  - Dysuria [Unknown]
